FAERS Safety Report 5551972-3 (Version None)
Quarter: 2007Q4

REPORT INFORMATION
  Report Type: 
  Country: None (occurrence: None)
  Receive Date: 20071129
  Receipt Date: 20070618
  Transmission Date: 20080405
  Serious: Yes (Hospitalization)
  Sender: FDA-Public Use
  Company Number: US200703002084

PATIENT
  Age: 30 Year
  Sex: Female
  Weight: 107 kg

DRUGS (5)
  1. ZYPREXA [Suspect]
     Indication: SCHIZOPHRENIA
     Dosage: 20 MG; 20 MG
     Dates: start: 20061208, end: 20061210
  2. ZYPREXA [Suspect]
     Indication: SCHIZOPHRENIA
     Dosage: 20 MG; 20 MG
     Dates: start: 20061001
  3. ZYPREXA [Suspect]
     Indication: SCHIZOPHRENIA
  4. ABILIFY [Concomitant]
  5. LEXAPRO [Concomitant]

REACTIONS (5)
  - BLOOD GLUCOSE INCREASED [None]
  - METABOLIC DISORDER [None]
  - OBESITY [None]
  - POLYURIA [None]
  - TYPE 2 DIABETES MELLITUS [None]
